FAERS Safety Report 9136756 (Version 1)
Quarter: 2013Q1

REPORT INFORMATION
  Report Type: Spontaneous
  Country: US (occurrence: US)
  Receive Date: 20130304
  Receipt Date: 20130304
  Transmission Date: 20140127
  Serious: Yes (Hospitalization)
  Sender: FDA-Public Use
  Company Number: US-BAYER-2013-025144

PATIENT
  Age: 39 Year
  Sex: Female
  Weight: 74.83 kg

DRUGS (19)
  1. YAZ [Suspect]
     Indication: DYSMENORRHOEA
  2. YASMIN [Suspect]
  3. SEROQUEL [Concomitant]
     Dosage: 100 MG, UNK
     Route: 048
     Dates: start: 20060919
  4. CYMBALTA [Concomitant]
  5. TRILEPTAL [Concomitant]
  6. PREVACID [Concomitant]
  7. REQUIP [Concomitant]
  8. MAXALT [Concomitant]
  9. FLEXERIL [Concomitant]
  10. EFFEXOR [Concomitant]
  11. BACTRIM [Concomitant]
  12. BUSPAR [Concomitant]
  13. DARVOCET [Concomitant]
  14. WELLBUTRIN [Concomitant]
  15. PROTONIX [Concomitant]
  16. LANSOPRAZOLE [Concomitant]
  17. OXCARBAZEPINE [Concomitant]
  18. DULOXETINE [Concomitant]
  19. IBUPROFEN [Concomitant]

REACTIONS (1)
  - Pulmonary embolism [None]
